FAERS Safety Report 21250344 (Version 1)
Quarter: 2022Q3

REPORT INFORMATION
  Report Type: Spontaneous
  Country: FR (occurrence: FR)
  Receive Date: 20220824
  Receipt Date: 20220824
  Transmission Date: 20221026
  Serious: Yes (Other)
  Sender: FDA-Public Use
  Company Number: None

PATIENT
  Age: 66 Year
  Sex: Male
  Weight: 59 kg

DRUGS (8)
  1. KEYTRUDA [Suspect]
     Active Substance: PEMBROLIZUMAB
     Indication: Bronchial carcinoma
     Dosage: 200 MILLIGRAM, 1 CYCLICAL; 6 CYCLES
     Route: 042
     Dates: start: 20201105, end: 20210309
  2. PROPOFOL LIPURO [Suspect]
     Active Substance: PROPOFOL
     Indication: General anaesthesia
     Dosage: 250 MILLIGRAM, ONCE (1 TOTAL)
     Route: 042
     Dates: start: 20210325, end: 20210325
  3. KETOPROFEN [Suspect]
     Active Substance: KETOPROFEN
     Indication: General anaesthesia
     Dosage: 100 MILLIGRAM, ONCE (1 TOTAL)
     Route: 042
     Dates: start: 20210325, end: 20210325
  4. KETAMINE [Suspect]
     Active Substance: KETAMINE
     Indication: General anaesthesia
     Dosage: 50 MILLIGRAM, ONCE (1 TOTAL)
     Route: 042
     Dates: start: 20210325, end: 20210325
  5. TRAMADOL HYDROCHLORIDE [Suspect]
     Active Substance: TRAMADOL HYDROCHLORIDE
     Indication: Procedural pain
     Dosage: 1 GRAM
     Route: 048
     Dates: start: 20210325
  6. CISATRACURIUM [Suspect]
     Active Substance: CISATRACURIUM
     Indication: General anaesthesia
     Dosage: 14 MILLIGRAM, ONCE (1 TOTAL)
     Route: 042
     Dates: start: 20210325, end: 20210325
  7. ACETAMINOPHEN [Suspect]
     Active Substance: ACETAMINOPHEN
     Indication: Procedural pain
     Dosage: 1 GRAM
     Route: 048
     Dates: start: 20210325
  8. CEFAZOLIN SODIUM [Suspect]
     Active Substance: CEFAZOLIN SODIUM
     Indication: Antibiotic prophylaxis
     Dosage: 1 GRAM, ONCE (1 TOTAL);  (IM-IV)
     Route: 042
     Dates: start: 20210325, end: 20210325

REACTIONS (1)
  - Cholestatic liver injury [Recovered/Resolved]

NARRATIVE: CASE EVENT DATE: 20220330
